FAERS Safety Report 6191894-0 (Version None)
Quarter: 2009Q2

REPORT INFORMATION
  Report Type: 
  Country: None (occurrence: None)
  Receive Date: 20090515
  Receipt Date: 20090506
  Transmission Date: 20091009
  Serious: Yes (Hospitalization)
  Sender: FDA-Public Use
  Company Number: AU-TEVA-190042ISR

PATIENT
  Sex: Female

DRUGS (1)
  1. AMOXICILLIN AND CLAVULANATE POTASSIUM [Suspect]
     Indication: EAR INFECTION
     Dosage: 875/125MG
     Route: 048
     Dates: start: 20090313, end: 20090313

REACTIONS (2)
  - LETHARGY [None]
  - LOSS OF CONSCIOUSNESS [None]
